FAERS Safety Report 24585713 (Version 1)
Quarter: 2024Q4

REPORT INFORMATION
  Report Type: Spontaneous
  Country: US (occurrence: US)
  Receive Date: 20241106
  Receipt Date: 20241106
  Transmission Date: 20250114
  Serious: No
  Sender: CARA THERAPEUTICS
  Company Number: US-CARA THERAPEUTICS, INC.-2024-00296-US

PATIENT
  Sex: Female

DRUGS (1)
  1. KORSUVA [Suspect]
     Active Substance: DIFELIKEFALIN ACETATE
     Indication: Pruritus
     Dosage: UNK

REACTIONS (2)
  - Pruritus [Unknown]
  - Drug ineffective [Unknown]
